FAERS Safety Report 19925651 (Version 1)
Quarter: 2021Q4

REPORT INFORMATION
  Report Type: Spontaneous
  Country: FR (occurrence: FR)
  Receive Date: 20211006
  Receipt Date: 20211006
  Transmission Date: 20220303
  Serious: Yes (Other)
  Sender: FDA-Public Use
  Company Number: FR-ASTRAZENECA-2021A488497

PATIENT
  Age: 38 Year
  Sex: Female

DRUGS (1)
  1. TAMOXIFEN [Suspect]
     Active Substance: TAMOXIFEN
     Indication: Invasive breast carcinoma
     Dosage: UNK
     Route: 048
     Dates: start: 2016

REACTIONS (5)
  - Malignant pleural effusion [Unknown]
  - Carbohydrate antigen 15-3 increased [Unknown]
  - Malignant neoplasm progression [Unknown]
  - Hormone refractory breast cancer [Unknown]
  - Carcinoembryonic antigen increased [Unknown]

NARRATIVE: CASE EVENT DATE: 20200401
